FAERS Safety Report 6218364 (Version 2)
Quarter: 2016Q1

REPORT INFORMATION
  Report Type: Spontaneous
  Country: FR (occurrence: FR)
  Receive Date: 20070119
  Receipt Date: 20160203
  Transmission Date: 20160526
  Serious: Yes (Hospitalization, Other)
  Sender: FDA-Public Use
  Company Number: FR-BRISTOL-MYERS SQUIBB COMPANY-13643085

PATIENT
  Age: 34 Year
  Sex: Female

DRUGS (4)
  1. FARMORUBICINE [Suspect]
     Active Substance: EPIRUBICIN HYDROCHLORIDE
     Indication: BREAST CANCER
     Dosage: 100 MG/M2, UNK
     Route: 042
     Dates: start: 20060829, end: 20060829
  2. FLUORO URACIL [Suspect]
     Active Substance: FLUOROURACIL
     Indication: BREAST CANCER
     Dosage: 500 MG/M2, UNK
     Route: 042
     Dates: start: 20060829, end: 20060829
  3. TAXOL [Suspect]
     Active Substance: PACLITAXEL
     Indication: BREAST CANCER
     Dosage: UNK UNK, PRN
     Route: 042
     Dates: end: 20061114
  4. ENDOXAN [Suspect]
     Active Substance: CYCLOPHOSPHAMIDE
     Indication: BREAST CANCER
     Dosage: 500 MG/M2, UNK
     Route: 042
     Dates: start: 20060829, end: 20060829

REACTIONS (5)
  - Functional gastrointestinal disorder [Recovered/Resolved]
  - Pregnancy [Recovered/Resolved]
  - Caesarean section [Recovered/Resolved]
  - Artificial insemination by partner [Unknown]
  - Live birth [Unknown]

NARRATIVE: CASE EVENT DATE: 2006
